FAERS Safety Report 12874962 (Version 2)
Quarter: 2016Q4

REPORT INFORMATION
  Report Type: Report from Study
  Country: GB (occurrence: GB)
  Receive Date: 20161022
  Receipt Date: 20161107
  Transmission Date: 20170207
  Serious: Yes (Hospitalization)
  Sender: FDA-Public Use
  Company Number: GB-B.I. PHARMACEUTICALS,INC./RIDGEFIELD-2016-BI-49248BI

PATIENT
  Age: 30 Year
  Sex: Female
  Weight: 82.3 kg

DRUGS (2)
  1. BLINDED BI 10773 [Suspect]
     Active Substance: EMPAGLIFLOZIN
     Indication: TYPE 1 DIABETES MELLITUS
     Route: 048
     Dates: start: 20160615, end: 20160726
  2. BLINDED BI 10773 [Suspect]
     Active Substance: EMPAGLIFLOZIN
     Route: 065
     Dates: start: 20160729

REACTIONS (1)
  - Ketosis [Recovered/Resolved]

NARRATIVE: CASE EVENT DATE: 20160726
